FAERS Safety Report 9818998 (Version 4)
Quarter: 2014Q2

REPORT INFORMATION
  Report Type: Spontaneous
  Country: AU (occurrence: None)
  Receive Date: 20140113
  Receipt Date: 20140408
  Transmission Date: 20141212
  Serious: Yes (Other)
  Sender: FDA-Public Use
  Company Number: AUR-APL-2014-00152

PATIENT
  Age: 53 Year
  Sex: Male
  Weight: 84 kg

DRUGS (4)
  1. OLANZAPINE [Suspect]
     Indication: SCHIZOAFFECTIVE DISORDER
     Dosage: (15 MG, 1 D)
     Route: 048
     Dates: start: 2012
  2. CRESTOR [Suspect]
     Indication: DYSLIPIDAEMIA
     Dosage: 20 MG, 1 D)
     Route: 048
     Dates: start: 2003
  3. CYMBALTA [Suspect]
     Indication: SCHIZOAFFECTIVE DISORDER
     Dosage: (60 MG, 1 D)
     Route: 048
     Dates: start: 2011
  4. DIAZEPAM [Suspect]
     Indication: SCHIZOAFFECTIVE DISORDER
     Route: 048
     Dates: start: 2012

REACTIONS (4)
  - Blood triglycerides increased [None]
  - Alanine aminotransferase increased [None]
  - Aspartate aminotransferase increased [None]
  - Blood bilirubin increased [None]
